FAERS Safety Report 19873670 (Version 1)
Quarter: 2021Q3

REPORT INFORMATION
  Report Type: Spontaneous
  Country: US (occurrence: US)
  Receive Date: 20210923
  Receipt Date: 20210923
  Transmission Date: 20211014
  Serious: Yes (Other)
  Sender: FDA-Public Use
  Company Number: None

PATIENT
  Age: 67 Year
  Sex: Female

DRUGS (4)
  1. ZONEAMIDE [Concomitant]
  2. CALCIUM VIT D [Concomitant]
     Active Substance: CALCIUM\CHOLECALCIFEROL
  3. DILANTIN [Concomitant]
     Active Substance: PHENYTOIN
  4. RECLAST [Suspect]
     Active Substance: ZOLEDRONIC ACID
     Indication: BONE DISORDER
     Dosage: ?          OTHER FREQUENCY:1 A YR;?
     Route: 042

REACTIONS (2)
  - Seizure [None]
  - Abdominal pain upper [None]

NARRATIVE: CASE EVENT DATE: 20210919
